FAERS Safety Report 9393155 (Version 1)
Quarter: 2013Q3

REPORT INFORMATION
  Report Type: Spontaneous
  Country: EG (occurrence: EG)
  Receive Date: 20130710
  Receipt Date: 20130710
  Transmission Date: 20140515
  Serious: Yes (Death, Other)
  Sender: FDA-Public Use
  Company Number: EG-JNJFOC-20130618943

PATIENT
  Sex: 0

DRUGS (6)
  1. DOXORUBICIN [Suspect]
     Indication: NEUROBLASTOMA
     Dosage: DAY 1 FOR 6-8 CYCLES
     Route: 042
  2. CYCLOPHOSPHAMIDE [Suspect]
     Indication: NEUROBLASTOMA
     Dosage: DAY 1 FOR 6-8 CYCLES
     Route: 065
  3. VINCRISTINE [Suspect]
     Indication: NEUROBLASTOMA
     Dosage: DAY 1 FOR 6-8 CYCLES
     Route: 065
  4. CARBOPLATIN [Suspect]
     Indication: NEUROBLASTOMA
     Dosage: DAY 1-5 FOR 6-8 CYCLES
     Route: 065
  5. ETOPOSIDE [Suspect]
     Indication: NEUROBLASTOMA
     Dosage: DAY 1-5 FOR 6-8 CYCLES
     Route: 065
  6. RADIOTHERAPY [Suspect]
     Indication: NEUROBLASTOMA
     Route: 065

REACTIONS (7)
  - Toxicity to various agents [Fatal]
  - Bone marrow failure [Unknown]
  - Disease progression [Unknown]
  - Vomiting [Unknown]
  - Alopecia [Unknown]
  - Abdominal distension [Unknown]
  - Off label use [Unknown]
